FAERS Safety Report 10693676 (Version 1)
Quarter: 2015Q1

REPORT INFORMATION
  Report Type: Spontaneous
  Country: US (occurrence: US)
  Receive Date: 20150106
  Receipt Date: 20150106
  Transmission Date: 20150721
  Serious: Yes (Hospitalization)
  Sender: FDA-Public Use
  Company Number: PHHY2014US170443

PATIENT
  Age: 13 Year
  Sex: Female

DRUGS (1)
  1. DIPHENHYDRAMINE [Suspect]
     Active Substance: DIPHENHYDRAMINE
     Indication: PRODUCT USED FOR UNKNOWN INDICATION
     Dosage: 24 DF, (TOTAL DOSE 600 MG; 9.5 MG/KG)
     Route: 065

REACTIONS (13)
  - Mucosal dryness [Recovered/Resolved]
  - Mental status changes [Recovered/Resolved]
  - Anticholinergic syndrome [Recovered/Resolved]
  - Intentional overdose [Recovered/Resolved]
  - Flushing [Recovered/Resolved]
  - Tachycardia [Recovered/Resolved]
  - Agitation [Recovered/Resolved]
  - Hallucination, visual [Recovered/Resolved]
  - Aggression [Recovered/Resolved]
  - Confusional state [Recovered/Resolved]
  - Incoherent [Recovered/Resolved]
  - Mydriasis [Recovered/Resolved]
  - Psychotic disorder [Recovered/Resolved]
